FAERS Safety Report 24058130 (Version 1)
Quarter: 2024Q3

REPORT INFORMATION
  Report Type: Spontaneous
  Country: IL (occurrence: IL)
  Receive Date: 20240707
  Receipt Date: 20240707
  Transmission Date: 20241017
  Serious: Yes (Other)
  Sender: BEIGENE
  Company Number: IL-BEIGENE-BGN-2024-010234

PATIENT

DRUGS (1)
  1. BRUKINSA [Suspect]
     Active Substance: ZANUBRUTINIB
     Indication: Chronic lymphocytic leukaemia
     Dosage: 320 MILLIGRAM, EVERY 1 DAY
     Route: 048
     Dates: start: 202309

REACTIONS (2)
  - White blood cell count decreased [Recovered/Resolved]
  - Malaise [Unknown]
